FAERS Safety Report 11934002 (Version 2)
Quarter: 2016Q1

REPORT INFORMATION
  Report Type: Report from Study
  Country: DE (occurrence: DE)
  Receive Date: 20160121
  Receipt Date: 20160314
  Transmission Date: 20160526
  Serious: Yes (Life-Threatening, Hospitalization)
  Sender: FDA-Public Use
  Company Number: PHHY2016DE005482

PATIENT
  Sex: Male
  Weight: 60 kg

DRUGS (11)
  1. LISINOPRIL AL [Concomitant]
     Indication: HYPERTENSION
     Dosage: 20 MG, UNK
     Route: 065
     Dates: start: 20101126
  2. QVA149 [Suspect]
     Active Substance: INVESTIGATIONAL PRODUCT
     Dosage: 1 DF, QD 50 ?G/ 110 ?G, 1 IN THE MORNING
     Route: 055
     Dates: start: 20140721
  3. SALBUTAMOL CT [Concomitant]
     Indication: CHRONIC OBSTRUCTIVE PULMONARY DISEASE
     Dosage: 100 MG, QD (AS NEEDED)
     Route: 055
     Dates: start: 20131203
  4. OMEPRAZOL AL [Concomitant]
     Active Substance: OMEPRAZOLE
     Indication: GASTROOESOPHAGEAL REFLUX DISEASE
     Dosage: 20 MG, QD (AS NEEDED)
     Route: 065
     Dates: start: 20101126
  5. ASS ^HEXAL^ [Concomitant]
     Active Substance: ASPIRIN
     Indication: PRODUCT USED FOR UNKNOWN INDICATION
     Dosage: 100 OT, UNK
     Route: 065
     Dates: start: 20140721
  6. SALBUTAMOL-RATIOPHARM N [Concomitant]
     Indication: PRODUCT USED FOR UNKNOWN INDICATION
     Dosage: UNK UNK, PRN
     Route: 065
     Dates: start: 20140721
  7. BISOPROLOL 1A PHARMA [Concomitant]
     Active Substance: BISOPROLOL
     Indication: PRODUCT USED FOR UNKNOWN INDICATION
     Dosage: 5 OT, 0.5 IN THE MORNING
     Route: 065
  8. ASS AL [Concomitant]
     Indication: CORONARY ARTERY DISEASE
     Dosage: 100 MG, QD
     Route: 065
     Dates: start: 20101126, end: 20140818
  9. LISINOPRIL 1 A PHARMA [Concomitant]
     Indication: PRODUCT USED FOR UNKNOWN INDICATION
     Dosage: 20 OT, 1 IN THE MORNING
     Route: 065
     Dates: start: 20140721
  10. QVA149 [Suspect]
     Active Substance: INVESTIGATIONAL PRODUCT
     Indication: CHRONIC OBSTRUCTIVE PULMONARY DISEASE
     Dosage: 1 DF (PUFF), QD (110UG/50UG (85UG/43UG)
     Route: 055
     Dates: start: 20131203
  11. BISOPROLOL AL [Concomitant]
     Indication: HYPERTENSION
     Dosage: 2.5 MG, QD
     Route: 065
     Dates: start: 20101126

REACTIONS (2)
  - Pulmonary embolism [Recovered/Resolved]
  - Chronic obstructive pulmonary disease [Recovered/Resolved]

NARRATIVE: CASE EVENT DATE: 20140731
